FAERS Safety Report 9019724 (Version 2)
Quarter: 2013Q1

REPORT INFORMATION
  Report Type: Spontaneous
  Country: US (occurrence: US)
  Receive Date: 20130118
  Receipt Date: 20130214
  Transmission Date: 20140127
  Serious: No
  Sender: FDA-Public Use
  Company Number: US-PFIZER INC-2013018601

PATIENT
  Sex: 0

DRUGS (1)
  1. DEPO-TESTOSTERONE [Suspect]
     Dosage: UNK
     Route: 030

REACTIONS (1)
  - Injection site pain [Unknown]
